FAERS Safety Report 20835467 (Version 1)
Quarter: 2022Q2

REPORT INFORMATION
  Report Type: Spontaneous
  Country: US (occurrence: US)
  Receive Date: 20220516
  Receipt Date: 20220516
  Transmission Date: 20220720
  Serious: No
  Sender: FDA-Public Use
  Company Number: US-G1-000540

PATIENT
  Sex: Female
  Weight: 68.039 kg

DRUGS (20)
  1. COSELA [Suspect]
     Active Substance: TRILACICLIB DIHYDROCHLORIDE
     Indication: Small cell lung cancer
     Dosage: TIME INTERVAL: TOTAL
     Route: 050
  2. 1608892 (GLOBALC3Sep21): Amlodipine Besylate [Concomitant]
     Route: 048
     Dates: start: 20200127
  3. 1325604 (GLOBALC3Sep21): Prochlorperazine Maleate [Concomitant]
     Indication: Prophylaxis of nausea and vomiting
     Dosage: EVER 6 HOURS AS REQUIRED
     Route: 048
     Dates: start: 20220321
  4. 1325695 (GLOBALC3Sep21): Dexamethasone IV [Concomitant]
     Indication: Premedication
     Dosage: TIME INTERVAL: CYCLICAL
     Route: 042
     Dates: start: 20220321
  5. 1326016 (GLOBALC3Sep21): Epinephrine IM [Concomitant]
     Indication: Hypersensitivity
     Dosage: TIME INTERVAL: CYCLICAL
     Route: 030
     Dates: start: 20220321
  6. 2740748 (GLOBALC3Sep21): Diphenhydramine IV [Concomitant]
     Indication: Hypersensitivity
     Dosage: TIME INTERVAL: CYCLICAL
     Route: 042
     Dates: start: 20220321
  7. 1266497 (GLOBALC3Sep21): Hydrocortisone IV [Concomitant]
     Indication: Hypersensitivity
     Dosage: TIME INTERVAL: CYCLICAL
     Route: 042
     Dates: start: 20220321
  8. 1262333 (GLOBALC3Sep21): Aspirin [Concomitant]
     Route: 065
  9. 3865530 (GLOBALC3Sep21): Hydrocodone-acetaminophen [Concomitant]
     Indication: Pain
     Dosage: 10-325 MG
     Route: 048
     Dates: start: 20220317
  10. 2406383 (GLOBALC3Sep21): Olanzapine [Concomitant]
     Indication: Appetite disorder
     Route: 048
     Dates: start: 20220328
  11. 4146027 (GLOBALC3Sep21): Toujeo SoloStar [Concomitant]
     Dosage: 300 UNIT/ML; INJECT 20 UNITS SUBCUTANEOUSLY DAILY
     Route: 058
     Dates: start: 20200127
  12. 1326091 (GLOBALC3Sep21): Etoposide IV [Concomitant]
     Dosage: TIME INTERVAL: CYCLICAL
     Route: 042
     Dates: start: 20220321
  13. 4184942 (GLOBALC3Sep21): Palonosetron IV [Concomitant]
     Indication: Premedication
     Route: 042
     Dates: start: 20220321
  14. 1692462 (GLOBALC3Sep21): Ondansetron [Concomitant]
     Indication: Prophylaxis of nausea and vomiting
     Dosage: EVERY 8 HOURS AS NEEDED
     Route: 048
     Dates: start: 20220321
  15. 4439342 (GLOBALC3Sep21): Fosaprepitant IV [Concomitant]
     Indication: Premedication
     Route: 042
     Dates: start: 20220321
  16. 2997026 (GLOBALC3Sep21): Sodium chloride IV [Concomitant]
     Dosage: 0.9%
     Route: 042
     Dates: start: 20220321
  17. 1327034 (GLOBALC3Sep21): Methylprednisolone IV [Concomitant]
     Indication: Hypersensitivity
     Route: 042
     Dates: start: 20220321
  18. 1324567 (GLOBALC3Sep21): famotidine IV [Concomitant]
     Indication: Hypersensitivity
     Dosage: TIME INTERVAL: CYCLICAL
     Route: 042
     Dates: start: 20220321
  19. 1327063 (GLOBALC3Sep21): Metformin HCL [Concomitant]
     Dosage: WITH MEALS
     Route: 048
     Dates: start: 20200127
  20. 1325315 (GLOBALC3Sep21): Carboplatin IV [Concomitant]
     Dosage: TIME INTERVAL: CYCLICAL
     Route: 042
     Dates: start: 20220321

REACTIONS (2)
  - Incorrect dose administered [Unknown]
  - Product prescribing issue [Unknown]
